FAERS Safety Report 6012705-X (Version None)
Quarter: 2008Q4

REPORT INFORMATION
  Report Type: 
  Country: None (occurrence: None)
  Receive Date: 20081218
  Receipt Date: 20081209
  Transmission Date: 20090506
  Serious: Yes (Hospitalization)
  Sender: FDA-Public Use
  Company Number: CA-AMGEN-QUU323134

PATIENT
  Sex: Female

DRUGS (3)
  1. ENBREL [Suspect]
     Indication: RHEUMATOID ARTHRITIS
     Route: 058
     Dates: start: 20050101, end: 20080519
  2. MICARDIS [Concomitant]
     Dates: end: 20080519
  3. VITAMIN B-12 [Concomitant]

REACTIONS (1)
  - PERICARDIAL EFFUSION [None]
